FAERS Safety Report 19817403 (Version 2)
Quarter: 2021Q3

REPORT INFORMATION
  Report Type: Report from Study
  Country: US (occurrence: US)
  Receive Date: 20210910
  Receipt Date: 20210927
  Transmission Date: 20211014
  Serious: Yes (Other)
  Sender: FDA-Public Use
  Company Number: US-GILEAD-2021-0534542

PATIENT
  Age: 62 Year
  Sex: Female

DRUGS (31)
  1. PLACEBO [Suspect]
     Active Substance: UNSPECIFIED INGREDIENT
     Indication: COVID-19
     Dosage: UNK UNK, ONCE
     Route: 042
     Dates: start: 20210513
  2. AMLODIPINE [Concomitant]
     Active Substance: AMLODIPINE BESYLATE
  3. COLECALCIFEROL [Concomitant]
     Active Substance: CHOLECALCIFEROL
  4. DEXAMETHASONE. [Concomitant]
     Active Substance: DEXAMETHASONE
  5. IOHEXOL [Concomitant]
     Active Substance: IOHEXOL
  6. GUAIFENESIN. [Concomitant]
     Active Substance: GUAIFENESIN
  7. METHYLPREDNISOLONE. [Concomitant]
     Active Substance: METHYLPREDNISOLONE
  8. PREDNISONE. [Concomitant]
     Active Substance: PREDNISONE
  9. FERROUS SULFATE. [Concomitant]
     Active Substance: FERROUS SULFATE
  10. INULA HELENIUM ROOT;SENNA ALEXANDRINA LEAF [Concomitant]
  11. SODIUM ZIRCONIUM CYCLOSILICATE. [Concomitant]
     Active Substance: SODIUM ZIRCONIUM CYCLOSILICATE
  12. BLINDED INFLIXIMAB [Suspect]
     Active Substance: INFLIXIMAB
     Indication: COVID-19
     Dosage: UNK UNK, ONCE
     Route: 042
     Dates: start: 20210513
  13. INSULIN [Concomitant]
     Active Substance: INSULIN NOS
  14. MECLOZINE HYDROCHLORIDE [Concomitant]
     Active Substance: MECLOZINE DIHYDROCHLORIDE
  15. THIAMINE. [Concomitant]
     Active Substance: THIAMINE
  16. ASCORBIC ACID. [Concomitant]
     Active Substance: ASCORBIC ACID
  17. LACTULOSE. [Concomitant]
     Active Substance: LACTULOSE
  18. MELATONIN [Concomitant]
     Active Substance: MELATONIN
  19. SODIUM CHLORIDE. [Concomitant]
     Active Substance: SODIUM CHLORIDE
  20. CEFTRIAXONE. [Concomitant]
     Active Substance: CEFTRIAXONE
  21. DOCUSATE SODIUM. [Concomitant]
     Active Substance: DOCUSATE SODIUM
  22. FAMOTIDINE. [Concomitant]
     Active Substance: FAMOTIDINE
  23. OXYMETAZOLINE HYDROCHLORIDE. [Concomitant]
     Active Substance: OXYMETAZOLINE HYDROCHLORIDE
  24. ALUMINIUM HYDROXIDE;MAGNESIUM ALUMINUM SILICATE;MAGNESIUM HYDROXIDE [Concomitant]
  25. REMDESIVIR. [Suspect]
     Active Substance: REMDESIVIR
     Indication: COVID-19
     Dosage: UNK UNK, QD
     Route: 042
     Dates: start: 20210513
  26. ENOXAPARIN [Concomitant]
     Active Substance: ENOXAPARIN
  27. ESCITALOPRAM [Concomitant]
     Active Substance: ESCITALOPRAM OXALATE
  28. PHENOL. [Concomitant]
     Active Substance: PHENOL
  29. ZINC SULFATE. [Concomitant]
     Active Substance: ZINC SULFATE
  30. BENZONATATE. [Concomitant]
     Active Substance: BENZONATATE
  31. PROPRANOLOL [Concomitant]
     Active Substance: PROPRANOLOL HYDROCHLORIDE

REACTIONS (1)
  - Thrombocytopenia [Recovered/Resolved]

NARRATIVE: CASE EVENT DATE: 20210520
